FAERS Safety Report 13992684 (Version 1)
Quarter: 2017Q3

REPORT INFORMATION
  Report Type: Spontaneous
  Country: US (occurrence: US)
  Receive Date: 20170920
  Receipt Date: 20170920
  Transmission Date: 20171128
  Serious: No
  Sender: FDA-Public Use
  Company Number: US-JNJFOC-20170714556

PATIENT
  Age: 46 Year
  Sex: Female

DRUGS (1)
  1. STELARA [Suspect]
     Active Substance: USTEKINUMAB
     Indication: PRODUCT USED FOR UNKNOWN INDICATION
     Route: 058
     Dates: start: 201606

REACTIONS (5)
  - Drug dose omission [Unknown]
  - Accidental exposure to product [Unknown]
  - Device malfunction [Unknown]
  - Corrective lens user [Unknown]
  - Product leakage [Unknown]

NARRATIVE: CASE EVENT DATE: 20170718
